FAERS Safety Report 7815668-7 (Version None)
Quarter: 2011Q4

REPORT INFORMATION
  Report Type: 
  Country: None (occurrence: None)
  Receive Date: 20111014
  Receipt Date: 20111012
  Transmission Date: 20120403
  Serious: Yes (Hospitalization, Other)
  Sender: FDA-Public Use
  Company Number: KR-BAYER-2011-083103

PATIENT
  Sex: Male

DRUGS (3)
  1. ACETAMINOPHEN [Concomitant]
  2. CLONAZEPAM [Concomitant]
     Indication: ATAXIA
     Dosage: UNK
     Dates: start: 20101101, end: 20110101
  3. BETAFERON [Suspect]
     Indication: PRIMARY PROGRESSIVE MULTIPLE SCLEROSIS
     Dosage: UNK
     Dates: start: 20100901

REACTIONS (9)
  - INJECTION SITE PAIN [None]
  - PAIN IN EXTREMITY [None]
  - DEPRESSED MOOD [None]
  - FATIGUE [None]
  - WEIGHT DECREASED [None]
  - GINGIVAL PAIN [None]
  - INJECTION SITE INDURATION [None]
  - PARAESTHESIA [None]
  - INJECTION SITE ERYTHEMA [None]
